FAERS Safety Report 6037460-9 (Version None)
Quarter: 2009Q1

REPORT INFORMATION
  Report Type: 
  Country: None (occurrence: None)
  Receive Date: 20090114
  Receipt Date: 20090112
  Transmission Date: 20090719
  Serious: Yes (Other)
  Sender: FDA-Public Use
  Company Number: US-ABBOTT-08P-163-0493633-00

PATIENT
  Age: 23 Year
  Sex: Female

DRUGS (3)
  1. KALETRA [Suspect]
     Indication: HIV INFECTION
     Dosage: 1000 MG DAILY
     Route: 048
     Dates: start: 20080205
  2. LAMIVUDINE + ZIDOVUDINE [Suspect]
     Indication: HIV INFECTION
     Dosage: 900 MG DAILY
     Route: 048
     Dates: start: 20080205
  3. MARAVIROC [Suspect]
     Indication: HIV INFECTION
     Dosage: 1200 MG DAILY; FILM-COATED TABLET
     Route: 048
     Dates: start: 20080302

REACTIONS (1)
  - INTRA-UTERINE DEATH [None]
